FAERS Safety Report 4860587-1 (Version None)
Quarter: 2005Q4

REPORT INFORMATION
  Report Type: 
  Country: None (occurrence: None)
  Receive Date: 20051219
  Receipt Date: 20050829
  Transmission Date: 20060501
  Serious: Yes (Hospitalization)
  Sender: FDA-Public Use
  Company Number: US-MERCK-0508USA04772

PATIENT
  Age: 53 Year
  Sex: Male
  Weight: 80 kg

DRUGS (4)
  1. VIOXX [Suspect]
     Indication: ARTHRALGIA
     Route: 048
     Dates: start: 20030401, end: 20040701
  2. ASPIRIN [Concomitant]
     Route: 065
  3. VALIUM [Concomitant]
     Route: 065
     Dates: start: 20000101
  4. CARDIZEM [Concomitant]
     Route: 065
     Dates: start: 20000101

REACTIONS (7)
  - ARTHRALGIA [None]
  - CARDIAC DISORDER [None]
  - CHEST PAIN [None]
  - DIZZINESS [None]
  - JOINT SWELLING [None]
  - OVERDOSE [None]
  - PAIN IN EXTREMITY [None]
